FAERS Safety Report 24225017 (Version 1)
Quarter: 2024Q3

REPORT INFORMATION
  Report Type: Spontaneous
  Country: CN (occurrence: CN)
  Receive Date: 20240820
  Receipt Date: 20240820
  Transmission Date: 20241017
  Serious: Yes (Hospitalization, Other)
  Sender: NOVAST
  Company Number: CN-NOVAST LABORATORIES INC.-2024NOV000291

PATIENT

DRUGS (2)
  1. METOPROLOL SUCCINATE [Suspect]
     Active Substance: METOPROLOL SUCCINATE
     Indication: Hypertension
     Dosage: 50 MILLIGRAM
     Route: 048
     Dates: start: 20240726, end: 20240801
  2. LEVAMLODIPINE BESYLATE [Concomitant]
     Active Substance: LEVAMLODIPINE BESYLATE
     Indication: Hypertension
     Dosage: 2.5 MILLIGRAM, QD
     Route: 048
     Dates: start: 20240726, end: 20240801

REACTIONS (2)
  - Amaurosis fugax [Unknown]
  - Dizziness [Unknown]

NARRATIVE: CASE EVENT DATE: 20240801
